FAERS Safety Report 6044714-9 (Version None)
Quarter: 2009Q1

REPORT INFORMATION
  Report Type: 
  Country: None (occurrence: None)
  Receive Date: 20090120
  Receipt Date: 20090114
  Transmission Date: 20090719
  Serious: Yes (Hospitalization)
  Sender: FDA-Public Use
  Company Number: AU-B.I. PHARMACEUTICALS,INC./RIDGEFIELD-2009-BP-00517AU

PATIENT
  Age: 50 Year
  Sex: Male

DRUGS (5)
  1. CATAPRES [Suspect]
     Dosage: 300MCG
  2. FENTANYL CITRATE [Suspect]
     Dosage: 200MCG
  3. OXYCODONE HYDROCHLORIDE [Suspect]
     Indication: PAIN
     Dosage: 20MG
  4. TRAMADOL HYDROCHLORIDE [Suspect]
     Indication: PAIN
  5. VENLAFAXINE HYDROCHLORIDE [Suspect]
     Indication: DEPRESSION
     Dosage: 75MG

REACTIONS (4)
  - CONFUSIONAL STATE [None]
  - HALLUCINATION, VISUAL [None]
  - PSYCHOMOTOR HYPERACTIVITY [None]
  - TREMOR [None]
